FAERS Safety Report 6156156-6 (Version None)
Quarter: 2009Q2

REPORT INFORMATION
  Report Type: 
  Country: None (occurrence: None)
  Receive Date: 20090415
  Receipt Date: 20090407
  Transmission Date: 20091009
  Serious: Yes (Other)
  Sender: FDA-Public Use
  Company Number: PHHY2009CA11594

PATIENT
  Sex: Male

DRUGS (8)
  1. DIOVAN [Suspect]
     Indication: HYPERTENSION
     Dosage: 160 MG, QD
     Route: 048
     Dates: start: 20071114
  2. BETA BLOCKING AGENTS [Concomitant]
  3. CALCIUM CHANNEL BLOCKERS [Concomitant]
  4. CRESTOR [Concomitant]
     Dosage: 20 MG, QD
     Dates: start: 20070522
  5. METOPROLOL TARTRATE [Concomitant]
     Dosage: 25 MG, BID
     Dates: start: 20070522
  6. NORVASC [Concomitant]
     Dosage: 5 MG AM + 2.5 MG PM
     Dates: start: 20070501
  7. ASPIRIN [Concomitant]
     Dosage: UNK
     Dates: start: 20070501
  8. NITROSORBIDE [Concomitant]
     Dosage: UNK
     Dates: start: 20070501

REACTIONS (4)
  - CHEST PAIN [None]
  - ELECTROCARDIOGRAM ABNORMAL [None]
  - PERCUTANEOUS CORONARY INTERVENTION [None]
  - VASCULAR STENT INSERTION [None]
